FAERS Safety Report 8312113-2 (Version None)
Quarter: 2012Q2

REPORT INFORMATION
  Report Type: 
  Country: None (occurrence: None)
  Receive Date: 20120425
  Receipt Date: 20110808
  Transmission Date: 20120825
  Serious: Yes (Other)
  Sender: FDA-Public Use
  Company Number: US-TEVA-US013050

PATIENT
  Sex: Female
  Weight: 82 kg

DRUGS (3)
  1. PROVIGIL [Suspect]
     Dosage: 400 MILLIGRAM;
     Route: 048
     Dates: start: 20040301
  2. SYNTHROID [Concomitant]
     Indication: THYROID DISORDER
     Dosage: 0.225 UNITS
     Route: 048
     Dates: start: 19980101
  3. PROVIGIL [Suspect]
     Indication: HYPERSOMNIA
     Dosage: 400 MILLIGRAM;
     Route: 048
     Dates: start: 20030801, end: 20040201

REACTIONS (3)
  - MATERNAL EXPOSURE DURING PREGNANCY [None]
  - ABORTION SPONTANEOUS [None]
  - BLOOD THYROID STIMULATING HORMONE INCREASED [None]
